FAERS Safety Report 23912626 (Version 2)
Quarter: 2024Q4

REPORT INFORMATION
  Report Type: Report from Study
  Country: US (occurrence: US)
  Receive Date: 20240529
  Receipt Date: 20241008
  Transmission Date: 20250114
  Serious: Yes (Other)
  Sender: ABBVIE
  Company Number: US-ABBVIE-5776592

PATIENT
  Sex: Female

DRUGS (3)
  1. SKYRIZI [Suspect]
     Active Substance: RISANKIZUMAB-RZAA
     Indication: Crohn^s disease
     Dosage: FORM STRENGTH: 600 MILLIGRAM, WEEK 4
     Route: 042
     Dates: start: 202310, end: 202310
  2. SKYRIZI [Suspect]
     Active Substance: RISANKIZUMAB-RZAA
     Dosage: FORM STRENGTH: 600 MILLIGRAM, WEEK 8
     Route: 042
     Dates: start: 202311, end: 202311
  3. SKYRIZI [Suspect]
     Active Substance: RISANKIZUMAB-RZAA
     Dosage: FORM STRENGTH: 600 MILLIGRAM, WEEK 0
     Route: 042
     Dates: start: 20230829, end: 20230829

REACTIONS (7)
  - Benign neoplasm [Unknown]
  - Discomfort [Not Recovered/Not Resolved]
  - Dysphonia [Unknown]
  - Neck mass [Unknown]
  - Fatigue [Recovering/Resolving]
  - Post procedural complication [Unknown]
  - White blood cell count decreased [Not Recovered/Not Resolved]

NARRATIVE: CASE EVENT DATE: 20240101
